FAERS Safety Report 11617344 (Version 1)
Quarter: 2015Q4

REPORT INFORMATION
  Report Type: Spontaneous
  Country: CH (occurrence: CH)
  Receive Date: 20151009
  Receipt Date: 20151009
  Transmission Date: 20160304
  Serious: Yes (Other)
  Sender: FDA-Public Use
  Company Number: PHHY2015CH121027

PATIENT
  Age: 15 Year
  Sex: Male

DRUGS (2)
  1. DOXYCYCLINE. [Suspect]
     Active Substance: DOXYCYCLINE
     Indication: LEPTOSPIROSIS
     Dosage: UNK
     Route: 065
     Dates: start: 20150807
  2. MEROPENEM. [Suspect]
     Active Substance: MEROPENEM
     Indication: LEPTOSPIROSIS
     Route: 065
     Dates: start: 20150807

REACTIONS (1)
  - Jarisch-Herxheimer reaction [Recovering/Resolving]
